FAERS Safety Report 24722826 (Version 1)
Quarter: 2024Q4

REPORT INFORMATION
  Report Type: Spontaneous
  Country: GB (occurrence: GB)
  Receive Date: 20241211
  Receipt Date: 20241211
  Transmission Date: 20250114
  Serious: Yes (Other)
  Sender: TEVA
  Company Number: GB-MHRA-TPP19981753C10234555YC1733137339602

PATIENT
  Age: 80 Year
  Sex: Male
  Weight: 71 kg

DRUGS (5)
  1. TAMSULOSIN [Suspect]
     Active Substance: TAMSULOSIN
     Route: 065
  2. LANSOPRAZOLE [Concomitant]
     Active Substance: LANSOPRAZOLE
     Dosage: PROTECT THE STOMACH
     Dates: start: 20240624
  3. BECLOMETHASONE DIPROPIONATE [Concomitant]
     Active Substance: BECLOMETHASONE DIPROPIONATE
     Dosage: TWO PUFFS TWICE A DAY
     Dates: start: 20240624
  4. VAPRO NO TOUCH [Concomitant]
     Dosage: USE AS DIRECTED; DURATION: 29 DAYS
     Dates: start: 20240904, end: 20241002
  5. FINASTERIDE [Concomitant]
     Active Substance: FINASTERIDE
     Dosage: DAILY DOSE: 1 DOSAGE FORM
     Dates: start: 20240624

REACTIONS (2)
  - Circulatory collapse [Unknown]
  - Nausea [Recovered/Resolved]
